FAERS Safety Report 24163055 (Version 1)
Quarter: 2024Q3

REPORT INFORMATION
  Report Type: Spontaneous
  Country: AT (occurrence: AT)
  Receive Date: 20240801
  Receipt Date: 20240801
  Transmission Date: 20241017
  Serious: Yes (Other)
  Sender: AMERICAN REGENT
  Company Number: AT-AMERICAN REGENT INC-2024002910

PATIENT
  Age: 46 Year
  Sex: Female

DRUGS (1)
  1. FERINJECT [Suspect]
     Active Substance: FERRIC CARBOXYMALTOSE
     Indication: Product used for unknown indication
     Dosage: 500 MILLIGRAM
     Dates: start: 20240711, end: 20240711

REACTIONS (4)
  - Loss of consciousness [Unknown]
  - Skin exfoliation [Unknown]
  - Influenza like illness [Unknown]
  - Hypotension [Unknown]

NARRATIVE: CASE EVENT DATE: 20240713
